FAERS Safety Report 15455582 (Version 1)
Quarter: 2018Q4

REPORT INFORMATION
  Report Type: Report from Study
  Country: US (occurrence: US)
  Receive Date: 20181002
  Receipt Date: 20181002
  Transmission Date: 20190204
  Serious: Yes (Death, Other)
  Sender: FDA-Public Use
  Company Number: US-GILEAD-2018-0365916

PATIENT
  Age: 82 Year
  Sex: Female

DRUGS (17)
  1. ALLOPURINOL. [Concomitant]
     Active Substance: ALLOPURINOL
  2. FOLIC ACID. [Concomitant]
     Active Substance: FOLIC ACID
  3. LIVALO [Concomitant]
     Active Substance: PITAVASTATIN CALCIUM
  4. VITAMIN D                          /00107901/ [Concomitant]
     Active Substance: ERGOCALCIFEROL
  5. PREDNISONE. [Concomitant]
     Active Substance: PREDNISONE
  6. AMBRISENTAN [Suspect]
     Active Substance: AMBRISENTAN
     Indication: PULMONARY HYPERTENSION
     Dosage: 5 MG, QD
     Route: 065
  7. SPIRONOLACTONE. [Concomitant]
     Active Substance: SPIRONOLACTONE
  8. ISOSORBIDE MONONITRATE. [Concomitant]
     Active Substance: ISOSORBIDE MONONITRATE
  9. ADCIRCA [Concomitant]
     Active Substance: TADALAFIL
  10. FLORASTOR [Concomitant]
     Active Substance: SACCHAROMYCES CEREVISIAE
  11. METOPROLOL TARTRATE. [Concomitant]
     Active Substance: METOPROLOL TARTRATE
  12. SYNTHROID [Concomitant]
     Active Substance: LEVOTHYROXINE SODIUM
  13. COUMADIN [Concomitant]
     Active Substance: WARFARIN SODIUM
  14. PROCRIT [Concomitant]
     Active Substance: ERYTHROPOIETIN
  15. MEGARED OMEGA 3 KRILL OIL [Concomitant]
  16. IRON [Concomitant]
     Active Substance: IRON
  17. LASIX [Concomitant]
     Active Substance: FUROSEMIDE

REACTIONS (1)
  - Death [Fatal]

NARRATIVE: CASE EVENT DATE: 20180921
